FAERS Safety Report 5580459-7 (Version None)
Quarter: 2008Q1

REPORT INFORMATION
  Report Type: 
  Country: None (occurrence: None)
  Receive Date: 20080103
  Receipt Date: 20071224
  Transmission Date: 20080703
  Serious: Yes (Death)
  Sender: FDA-Public Use
  Company Number: TR-ELI_LILLY_AND_COMPANY-TR200712004658

PATIENT
  Sex: Female

DRUGS (4)
  1. HUMALOG [Suspect]
     Dosage: 8 U, EACH MORNING
     Route: 058
     Dates: start: 19970101
  2. HUMALOG [Suspect]
     Dosage: 8 U, AT NOON
     Route: 058
     Dates: start: 19970101
  3. HUMALOG [Suspect]
     Dosage: 8 U, EACH EVENING
     Route: 058
     Dates: start: 19970101
  4. ANTIHYPERTENSIVES [Concomitant]
     Indication: HYPERTENSION
     Dosage: UNK, UNKNOWN
     Route: 065

REACTIONS (1)
  - HYPERTENSION [None]
